FAERS Safety Report 19381711 (Version 1)
Quarter: 2021Q2

REPORT INFORMATION
  Report Type: Spontaneous
  Country: FR (occurrence: FR)
  Receive Date: 20210607
  Receipt Date: 20210607
  Transmission Date: 20210717
  Serious: Yes (Hospitalization, Other)
  Sender: FDA-Public Use
  Company Number: FR-AUROBINDO-AUR-APL-2017-05679

PATIENT
  Age: 54 Year
  Sex: Female

DRUGS (1)
  1. VALPROIC ACID. [Suspect]
     Active Substance: VALPROIC ACID
     Indication: PRODUCT USED FOR UNKNOWN INDICATION
     Dosage: OVERDOSE
     Route: 065

REACTIONS (6)
  - Acute kidney injury [Unknown]
  - Condition aggravated [Unknown]
  - Multiple organ dysfunction syndrome [Unknown]
  - Overdose [Unknown]
  - Loss of consciousness [Unknown]
  - Anuria [Unknown]
